FAERS Safety Report 7471604-7 (Version None)
Quarter: 2011Q2

REPORT INFORMATION
  Report Type: 
  Country: None (occurrence: None)
  Receive Date: 20110511
  Receipt Date: 20110329
  Transmission Date: 20111010
  Serious: Yes (Hospitalization)
  Sender: FDA-Public Use
  Company Number: US-BAYER-201041138NA

PATIENT
  Age: 29 Year
  Sex: Female
  Weight: 58.05 kg

DRUGS (10)
  1. IBUPROFEN [Concomitant]
     Indication: MIGRAINE
     Dosage: UNK UNK, PRN
  2. YASMIN [Suspect]
     Indication: CONTRACEPTION
  3. VITAMINS [Concomitant]
  4. DROSPIRENONE AND ETHINYL ESTRADIOL [Suspect]
     Indication: CONTRACEPTION
     Dosage: UNK
     Dates: start: 20090301
  5. DAILY VITAMINS [Concomitant]
     Dosage: UNK UNK, QD
     Route: 048
  6. ANTIBIOTICS [Concomitant]
     Indication: STREPTOBACILLUS INFECTION
     Dosage: UNK UNK, BID
     Route: 048
     Dates: start: 20090301
  7. TRETINOIN [Concomitant]
     Dosage: 0.05 %, UNK
     Dates: start: 20061016
  8. YASMIN [Suspect]
     Indication: ACNE
     Dosage: UNK
     Dates: start: 20060101, end: 20070101
  9. CAMILA [Suspect]
     Dosage: UNK
     Dates: start: 20080301, end: 20080701
  10. DOXYCYCLINE [Concomitant]
     Dosage: 100 MG, UNK
     Route: 048
     Dates: start: 20061114, end: 20061213

REACTIONS (3)
  - CHOLELITHIASIS [None]
  - ABDOMINAL PAIN [None]
  - GALLBLADDER DISORDER [None]
